FAERS Safety Report 12404751 (Version 1)
Quarter: 2016Q2

REPORT INFORMATION
  Report Type: Spontaneous
  Country: TR (occurrence: TR)
  Receive Date: 20160525
  Receipt Date: 20160525
  Transmission Date: 20160815
  Serious: Yes (Other)
  Sender: FDA-Public Use
  Company Number: TR-FRESENIUS KABI-FK201602954

PATIENT
  Age: 40 Year
  Sex: Male
  Weight: 45 kg

DRUGS (13)
  1. DURAGESIC [Suspect]
     Active Substance: FENTANYL
     Route: 062
  2. MORPHINE (MANUFACTURER UNKNOWN) [Suspect]
     Active Substance: MORPHINE
     Route: 037
  3. PREGABALIN. [Concomitant]
     Active Substance: PREGABALIN
     Indication: ANALGESIC THERAPY
     Route: 065
  4. DURAGESIC [Suspect]
     Active Substance: FENTANYL
     Indication: ANALGESIC THERAPY
     Route: 062
  5. DURAGESIC [Suspect]
     Active Substance: FENTANYL
     Route: 062
  6. DURAGESIC [Suspect]
     Active Substance: FENTANYL
     Route: 062
  7. CONTRAMAL [Suspect]
     Active Substance: TRAMADOL HYDROCHLORIDE
     Route: 065
  8. DURAGESIC [Suspect]
     Active Substance: FENTANYL
     Route: 062
  9. CONTRAMAL [Suspect]
     Active Substance: TRAMADOL HYDROCHLORIDE
     Indication: ANALGESIC THERAPY
  10. ARVELES [Concomitant]
     Active Substance: DEXKETOPROFEN
     Indication: ANALGESIC THERAPY
     Route: 065
  11. MORPHINE (MANUFACTURER UNKNOWN) [Suspect]
     Active Substance: MORPHINE
     Indication: EPIDURAL ANALGESIA
     Route: 008
  12. DURAGESIC [Suspect]
     Active Substance: FENTANYL
     Route: 062
  13. BUPIVACAINE. [Concomitant]
     Active Substance: BUPIVACAINE
     Indication: EPIDURAL ANALGESIA
     Route: 008

REACTIONS (1)
  - Hyperaesthesia [Recovered/Resolved]
